FAERS Safety Report 14813957 (Version 2)
Quarter: 2018Q4

REPORT INFORMATION
  Report Type: Spontaneous
  Country: FR (occurrence: FR)
  Receive Date: 20180426
  Receipt Date: 20181025
  Transmission Date: 20190204
  Serious: Yes (Other)
  Sender: FDA-Public Use
  Company Number: FR-MERCK KGAA-2046583

PATIENT
  Age: 42 Year
  Sex: Male

DRUGS (1)
  1. EUTHYROX [Suspect]
     Active Substance: LEVOTHYROXINE SODIUM
     Indication: PRODUCT USED FOR UNKNOWN INDICATION

REACTIONS (17)
  - Rectal haemorrhage [None]
  - Hypoaesthesia [None]
  - Anxiety [None]
  - Paraesthesia [None]
  - Constipation [None]
  - Haematochezia [None]
  - Fatigue [None]
  - Headache [None]
  - Loss of personal independence in daily activities [None]
  - Asthenia [None]
  - Insomnia [None]
  - Haemorrhoids [None]
  - Nausea [None]
  - Eczema [None]
  - Irritability [None]
  - Myalgia [None]
  - Emotional distress [None]

NARRATIVE: CASE EVENT DATE: 201704
